FAERS Safety Report 6014149 (Version 11)
Quarter: 2013Q2

REPORT INFORMATION
  Report Type: Spontaneous
  Country: US (occurrence: US)
  Receive Date: 20060329
  Receipt Date: 20130614
  Transmission Date: 20140414
  Serious: Yes (Death, Other)
  Sender: FDA-Public Use
  Company Number: PHEH2006US03646

PATIENT
  Age: 50 Year
  Sex: Female
  Weight: 58.96 kg

DRUGS (14)
  1. AREDIA [Suspect]
  2. ZOMETA [Suspect]
     Indication: METASTASES TO BONE
     Route: 042
     Dates: end: 200510
  3. FASLODEX [Concomitant]
     Dosage: UNK UKN, QMO
  4. TRIAMTERENE [Concomitant]
     Dosage: UNK UKN, QD
  5. KCL [Concomitant]
     Dosage: 10 MEQ, BID
  6. VITAMIN E [Concomitant]
     Dosage: 400 IU, QD
  7. VITAMIN B12 [Concomitant]
     Dosage: 500 MG, QD
  8. TYLENOL W/CODEINE NO. 3 [Concomitant]
  9. DEXAMETHASONE [Concomitant]
  10. ANTINEOPLASTIC AGENTS [Concomitant]
     Dosage: UNK UKN, UNK
     Dates: end: 200502
  11. ANTINEOPLASTIC AGENTS [Concomitant]
     Dosage: UNK UKN, UNK
     Dates: start: 200603
  12. RADIATION [Concomitant]
     Dosage: UNK UKN, UNK
     Dates: end: 200410
  13. FEMARA [Concomitant]
     Dosage: 2.5 MG, UNK
  14. DYAZIDE [Concomitant]

REACTIONS (43)
  - Neoplasm progression [Fatal]
  - Malignant neoplasm progression [Fatal]
  - Metastases to liver [Fatal]
  - Osteonecrosis of jaw [Unknown]
  - Bone disorder [Unknown]
  - Oral pain [Unknown]
  - Tongue disorder [Unknown]
  - Swollen tongue [Unknown]
  - Primary sequestrum [Unknown]
  - Bacterial infection [Unknown]
  - Anxiety [Unknown]
  - Pain [Unknown]
  - Decreased interest [Unknown]
  - Tooth abscess [Unknown]
  - Injury [Unknown]
  - Chest pain [Unknown]
  - Atelectasis [Unknown]
  - Intervertebral disc degeneration [Unknown]
  - Back pain [Unknown]
  - Cough [Unknown]
  - Abdominal pain [Unknown]
  - Foot fracture [Unknown]
  - Road traffic accident [Unknown]
  - Hypothyroidism [Unknown]
  - Goitre [Unknown]
  - Hypercalcaemia [Unknown]
  - Clavicle fracture [Unknown]
  - Neuropathy peripheral [Unknown]
  - Hypermetabolism [Unknown]
  - Hepatic lesion [Unknown]
  - Asthenia [Unknown]
  - Alopecia [Unknown]
  - Oedema [Unknown]
  - Decubitus ulcer [Unknown]
  - Gait disturbance [Unknown]
  - Faecal incontinence [Unknown]
  - Anaemia [Unknown]
  - Thrombocytopenia [Unknown]
  - Hepatic failure [Unknown]
  - Hepatic encephalopathy [Unknown]
  - Hepatomegaly [Unknown]
  - Disorientation [Unknown]
  - Aphasia [Unknown]
